FAERS Safety Report 7354073-7 (Version None)
Quarter: 2011Q1

REPORT INFORMATION
  Report Type: 
  Country: None (occurrence: None)
  Receive Date: 20110315
  Receipt Date: 20110305
  Transmission Date: 20110831
  Serious: Yes (Hospitalization)
  Sender: FDA-Public Use
  Company Number: US-AMGEN-USASP2011012641

PATIENT
  Age: 44 Year
  Sex: Female

DRUGS (1)
  1. ENBREL [Suspect]
     Indication: PSORIATIC ARTHROPATHY
     Dosage: 50 MG, QWK
     Route: 058
     Dates: start: 20040101

REACTIONS (5)
  - INJECTION SITE MACULE [None]
  - INJECTION SITE PRURITUS [None]
  - PSORIASIS [None]
  - INJECTION SITE ERYTHEMA [None]
  - CAESAREAN SECTION [None]
